FAERS Safety Report 5159563-3 (Version None)
Quarter: 2006Q4

REPORT INFORMATION
  Report Type: 
  Country: None (occurrence: None)
  Receive Date: 20061129
  Receipt Date: 20061003
  Transmission Date: 20070319
  Serious: Yes (Other)
  Sender: FDA-Public Use
  Company Number: 2006UW19212

PATIENT
  Age: 70 Year
  Sex: Female

DRUGS (4)
  1. ARIMIDEX [Suspect]
     Indication: BREAST CANCER
     Dosage: STOPPED FOR 4 DAYS
     Route: 048
  2. ARIMIDEX [Suspect]
     Route: 048
  3. VITAMIN A [Concomitant]
  4. ACIDOPHOLOUS [Concomitant]

REACTIONS (9)
  - ABNORMAL SENSATION IN EYE [None]
  - EYE PAIN [None]
  - FATIGUE [None]
  - HYPERTENSION [None]
  - KERATOCONJUNCTIVITIS SICCA [None]
  - MIGRAINE WITH AURA [None]
  - PAIN [None]
  - VISUAL DISTURBANCE [None]
  - VISUAL FIELD DEFECT [None]
